FAERS Safety Report 5789264-X (Version None)
Quarter: 2008Q2

REPORT INFORMATION
  Report Type: 
  Country: None (occurrence: None)
  Receive Date: 20080626
  Receipt Date: 20080616
  Transmission Date: 20081010
  Serious: Yes (Hospitalization)
  Sender: FDA-Public Use
  Company Number: US-JNJFOC-20080402436

PATIENT
  Sex: Male
  Weight: 82.1 kg

DRUGS (8)
  1. REMICADE [Suspect]
     Route: 042
  2. REMICADE [Suspect]
     Route: 042
  3. REMICADE [Suspect]
     Indication: COLITIS ULCERATIVE
     Route: 042
  4. ASACOL [Concomitant]
  5. IRON [Concomitant]
  6. WARFARIN SODIUM [Concomitant]
  7. STEROIDS [Concomitant]
  8. PREDNISONE [Concomitant]

REACTIONS (4)
  - ANAEMIA [None]
  - DIARRHOEA HAEMORRHAGIC [None]
  - INTERNATIONAL NORMALISED RATIO INCREASED [None]
  - THROMBOCYTHAEMIA [None]
